FAERS Safety Report 14613393 (Version 3)
Quarter: 2018Q3

REPORT INFORMATION
  Report Type: Spontaneous
  Country: GB (occurrence: GB)
  Receive Date: 20180308
  Receipt Date: 20180815
  Transmission Date: 20181010
  Serious: Yes (Hospitalization, Other)
  Sender: FDA-Public Use
  Company Number: GB-TEVA-2018-GB-865497

PATIENT
  Age: 57 Year
  Sex: Male
  Weight: 88 kg

DRUGS (17)
  1. LANSOPRAZOLE. [Concomitant]
     Active Substance: LANSOPRAZOLE
     Indication: PRODUCT USED FOR UNKNOWN INDICATION
     Dosage: 30 MILLIGRAM DAILY;
     Route: 065
  2. FLUOXETINE [Suspect]
     Active Substance: FLUOXETINE HYDROCHLORIDE
     Indication: PRODUCT USED FOR UNKNOWN INDICATION
     Route: 065
     Dates: start: 2012, end: 20170109
  3. BRINTELLIX [Suspect]
     Active Substance: VORTIOXETINE HYDROBROMIDE
     Route: 048
     Dates: start: 2016
  4. METFORMIN [Concomitant]
     Active Substance: METFORMIN HYDROCHLORIDE
     Indication: PRODUCT USED FOR UNKNOWN INDICATION
     Dosage: 2 MORNING AND 2 IN THE EVENING
     Route: 065
  5. BRINTELLIX [Suspect]
     Active Substance: VORTIOXETINE HYDROBROMIDE
     Indication: DEPRESSION
     Route: 065
     Dates: start: 20170109
  6. CLOPIDOGREL [Concomitant]
     Active Substance: CLOPIDOGREL BISULFATE
     Indication: PRODUCT USED FOR UNKNOWN INDICATION
     Dosage: 1 DOSAGE FORMS DAILY;
     Route: 065
  7. DOXAZOSIN 4 MG [Concomitant]
     Active Substance: DOXAZOSIN\DOXAZOSIN MESYLATE
     Indication: PRODUCT USED FOR UNKNOWN INDICATION
     Dosage: AT NIGHT
     Route: 065
  8. AMLODIPINE 10 MG [Concomitant]
     Active Substance: AMLODIPINE BESYLATE
     Indication: PRODUCT USED FOR UNKNOWN INDICATION
     Dosage: 1 DOSAGE FORMS DAILY;
     Route: 065
  9. AMLODIPINE 10 MG [Concomitant]
     Active Substance: AMLODIPINE BESYLATE
     Indication: ESSENTIAL HYPERTENSION
  10. METFORMIN [Concomitant]
     Active Substance: METFORMIN HYDROCHLORIDE
     Indication: TYPE 2 DIABETES MELLITUS
  11. ALLOPURINOL 100 MG [Concomitant]
     Active Substance: ALLOPURINOL
     Indication: PRODUCT USED FOR UNKNOWN INDICATION
     Dosage: 1 DOSAGE FORMS DAILY;
     Route: 065
  12. ALLOPURINOL 100 MG [Concomitant]
     Active Substance: ALLOPURINOL
     Indication: GOUT
  13. DAPAGLIFLOZIN. [Concomitant]
     Active Substance: DAPAGLIFLOZIN
     Indication: TYPE 2 DIABETES MELLITUS
     Route: 065
  14. CITALOPRAM [Suspect]
     Active Substance: CITALOPRAM HYDROBROMIDE
     Indication: PRODUCT USED FOR UNKNOWN INDICATION
     Route: 065
     Dates: end: 2008
  15. DOXAZOSIN 4 MG [Concomitant]
     Active Substance: DOXAZOSIN\DOXAZOSIN MESYLATE
     Indication: ESSENTIAL HYPERTENSION
  16. ATORVASTATIN  40 MG [Concomitant]
     Active Substance: ATORVASTATIN
     Indication: CEREBROVASCULAR ACCIDENT
     Dosage: 1 DOSAGE FORMS DAILY;
     Route: 065
  17. BRINTELLIX [Suspect]
     Active Substance: VORTIOXETINE HYDROBROMIDE
     Route: 065
     Dates: start: 201701

REACTIONS (23)
  - Negative thoughts [Unknown]
  - Panic disorder [Unknown]
  - Hypertension [Unknown]
  - Paraesthesia [Unknown]
  - Diplopia [Recovered/Resolved]
  - Suicidal ideation [Unknown]
  - Alcohol abuse [Unknown]
  - Nausea [Unknown]
  - Cerebrovascular accident [Unknown]
  - Tearfulness [Unknown]
  - Cerebrovascular accident [Unknown]
  - Panic reaction [Unknown]
  - Thinking abnormal [Unknown]
  - Asthenia [Unknown]
  - Diabetes mellitus [Unknown]
  - Amnesia [Unknown]
  - Job dissatisfaction [Unknown]
  - Treatment noncompliance [Unknown]
  - Drug ineffective [Unknown]
  - Feeling of despair [Unknown]
  - Disturbance in attention [Unknown]
  - Psychiatric symptom [Unknown]
  - Anxiety [Unknown]

NARRATIVE: CASE EVENT DATE: 2009
